FAERS Safety Report 6460624-7 (Version None)
Quarter: 2009Q4

REPORT INFORMATION
  Report Type: 
  Country: None (occurrence: None)
  Receive Date: 20091125
  Receipt Date: 20091125
  Transmission Date: 20100525
  Serious: Yes (Congenital Anomaly)
  Sender: FDA-Public Use
  Company Number: None

PATIENT
  Sex: Male

DRUGS (1)
  1. TREN XTREME [Suspect]

REACTIONS (5)
  - ASTHENIA [None]
  - JAUNDICE [None]
  - LIVER DISORDER [None]
  - PRODUCT COMPOUNDING QUALITY ISSUE [None]
  - SKIN IRRITATION [None]
